FAERS Safety Report 8204820-7 (Version None)
Quarter: 2012Q1

REPORT INFORMATION
  Report Type: 
  Country: None (occurrence: None)
  Receive Date: 20120313
  Receipt Date: 20120309
  Transmission Date: 20120608
  Serious: Yes (Hospitalization)
  Sender: FDA-Public Use
  Company Number: CA-JNJFOC-20120214377

PATIENT
  Sex: Male
  Weight: 71 kg

DRUGS (6)
  1. REMICADE [Suspect]
     Indication: RHEUMATOID ARTHRITIS
     Route: 042
     Dates: start: 20001204
  2. FOLIC ACID [Concomitant]
     Route: 048
  3. METHOTREXATE [Concomitant]
     Route: 048
  4. HYDROMORPHONE HCL [Concomitant]
     Route: 048
  5. COUMADIN [Concomitant]
     Route: 065
  6. HYDROMORPHONE HCL [Concomitant]
     Route: 048

REACTIONS (2)
  - GROIN INFECTION [None]
  - ANEURYSM [None]
